FAERS Safety Report 22635343 (Version 1)
Quarter: 2023Q2

REPORT INFORMATION
  Report Type: Spontaneous
  Country: US (occurrence: US)
  Receive Date: 20230623
  Receipt Date: 20230623
  Transmission Date: 20230721
  Serious: No
  Sender: FDA-Public Use
  Company Number: US-BAYER-2023A077356

PATIENT
  Age: 77 Year
  Sex: Male
  Weight: 134 kg

DRUGS (3)
  1. NUBEQA [Suspect]
     Active Substance: DAROLUTAMIDE
     Dosage: UNK
  2. NUBEQA [Suspect]
     Active Substance: DAROLUTAMIDE
     Dosage: UNK DOSE REDUCED TO HALF
  3. DUPILUMAB [Suspect]
     Active Substance: DUPILUMAB
     Indication: Asthma
     Dosage: 300MG/2ML WITH FREQUENCY OF QOW
     Route: 058
     Dates: start: 20201020

REACTIONS (1)
  - Limb injury [Not Recovered/Not Resolved]
